FAERS Safety Report 4667017-3 (Version None)
Quarter: 2005Q2

REPORT INFORMATION
  Report Type: 
  Country: None (occurrence: None)
  Receive Date: 20050520
  Receipt Date: 20040409
  Transmission Date: 20051028
  Serious: Yes (Other)
  Sender: FDA-Public Use
  Company Number: PHEH2004US04091

PATIENT
  Age: 27 Year
  Sex: Female

DRUGS (9)
  1. ZOMETA [Suspect]
     Dosage: 4MG OVER 15 MINUTES
     Dates: start: 20020621, end: 20030820
  2. EPOETIN ALFA [Concomitant]
     Dosage: 40,000 UNITS X 13 TREATMENTS
     Dates: start: 20020726, end: 20030715
  3. GEMCITABINE [Concomitant]
     Dosage: 1593-1730MG OVER 30 MINUTES
     Dates: start: 20030226, end: 20030903
  4. TAXOL [Concomitant]
     Dosage: 134-151 MG OVER 1HOUR
     Dates: start: 20020510, end: 20030131
  5. DEXAMETHASONE SODIUM PHOSPHATE [Concomitant]
     Dosage: 2-10MG OVER 15 MINUTES
     Dates: start: 20020524, end: 20030131
  6. DIPHENHYDRAMINE HCL [Concomitant]
     Dosage: 50MG OVER 5 MINUTES
     Dates: start: 20020510, end: 20030131
  7. GRANISETRON [Concomitant]
     Dosage: 1 MG X 11 TREATMENTS
     Dates: start: 20030519, end: 20030903
  8. RANITIDINE HYDROCHLORIDE [Concomitant]
     Dosage: 50 MG OVER 20 MINUTES
     Dates: start: 20020510, end: 20030131
  9. AREDIA [Suspect]
     Dosage: 90 MG/ OVER 1HOUR
     Dates: start: 20010126, end: 20020524

REACTIONS (4)
  - BONE DEBRIDEMENT [None]
  - OSTEONECROSIS [None]
  - TOOTH EXTRACTION [None]
  - WOUND TREATMENT [None]
